FAERS Safety Report 6534149-4 (Version None)
Quarter: 2010Q1

REPORT INFORMATION
  Report Type: 
  Country: None (occurrence: None)
  Receive Date: 20100112
  Receipt Date: 20100104
  Transmission Date: 20100710
  Serious: Yes (Hospitalization)
  Sender: FDA-Public Use
  Company Number: FR-BAYER-200941896GPV

PATIENT
  Age: 59 Year
  Sex: Male
  Weight: 53 kg

DRUGS (16)
  1. SORAFENIB [Suspect]
     Indication: HEPATIC NEOPLASM MALIGNANT
     Route: 048
     Dates: start: 20091021
  2. XANAX [Suspect]
     Indication: DEPRESSION
     Dates: start: 20091202
  3. NEURONTIN [Concomitant]
     Indication: HEADACHE
     Dosage: TOTAL DAILY DOSE: 300 MG
     Dates: start: 20091114
  4. GARDENAL [Concomitant]
     Indication: EPILEPSY
     Dosage: TOTAL DAILY DOSE: 100 MG
     Dates: start: 20050101
  5. CLARITIN [Concomitant]
     Indication: HYPERSENSITIVITY
     Dates: start: 20000101
  6. OMEPRAZOLE [Concomitant]
     Indication: PAIN PROPHYLAXIS
     Dates: start: 20090801
  7. PARACETAMOL [Concomitant]
     Indication: PAIN
     Dates: start: 20090801, end: 20091027
  8. ACTIFED [Concomitant]
     Indication: RHINITIS ALLERGIC
     Dates: start: 20091010, end: 20091027
  9. EFFEXOR [Concomitant]
     Indication: DEPRESSION
     Dosage: TOTAL DAILY DOSE: 75 MG
     Dates: start: 20091023
  10. PROPOFAN [CAFF,CARBASAL CA+,CHLORPHENAM MAL,DEXTROPROPOXYPH,PARACET] [Concomitant]
     Indication: HEADACHE
     Dates: start: 20091110, end: 20091113
  11. IXPRIM [Concomitant]
     Indication: HEADACHE
     Dosage: TOTAL DAILY DOSE: 6 DF
     Dates: start: 20090801, end: 20091027
  12. TRAMADOL HCL [Concomitant]
     Indication: HEADACHE
     Dates: start: 20091114, end: 20091201
  13. TOPALGIC [Concomitant]
     Indication: PAIN
     Dates: start: 20091201
  14. OXYNORM [Concomitant]
     Indication: PAIN
     Dates: start: 20091202
  15. EQUANIL [Concomitant]
     Indication: DEPRESSION
     Dates: start: 20091202
  16. STILNOX [Concomitant]
     Indication: PROPHYLAXIS
     Dates: start: 20091202

REACTIONS (2)
  - CONFUSIONAL STATE [None]
  - MALNUTRITION [None]
